FAERS Safety Report 20875210 (Version 1)
Quarter: 2022Q2

REPORT INFORMATION
  Report Type: Report from Study
  Country: US (occurrence: US)
  Receive Date: 20220526
  Receipt Date: 20220526
  Transmission Date: 20220720
  Serious: Yes (Death)
  Sender: FDA-Public Use
  Company Number: US-ABBVIE-22K-163-4410726-00

PATIENT
  Age: 90 Year
  Sex: Male

DRUGS (2)
  1. IMBRUVICA [Suspect]
     Active Substance: IBRUTINIB
     Indication: Waldenstrom^s macroglobulinaemia
     Route: 048
     Dates: start: 202107
  2. IMBRUVICA [Suspect]
     Active Substance: IBRUTINIB
     Indication: Metastases to pleura

REACTIONS (1)
  - Death [Fatal]

NARRATIVE: CASE EVENT DATE: 20220520
